FAERS Safety Report 15005706 (Version 1)
Quarter: 2018Q2

REPORT INFORMATION
  Report Type: Spontaneous
  Country: AU (occurrence: AU)
  Receive Date: 20180613
  Receipt Date: 20180613
  Transmission Date: 20180711
  Serious: Yes (Hospitalization, Other)
  Sender: FDA-Public Use
  Company Number: AU-ROCHE-2136701

PATIENT
  Age: 48 Year
  Sex: Male
  Weight: 90 kg

DRUGS (6)
  1. EXTINE (AUSTRALIA) (PAROXETINE HYDROCHLORIDE) [Suspect]
     Active Substance: PAROXETINE HYDROCHLORIDE
     Indication: PRODUCT USED FOR UNKNOWN INDICATION
     Route: 065
  2. AMLO [Concomitant]
  3. VALIUM [Suspect]
     Active Substance: DIAZEPAM
     Dosage: 2 TABLET DAILY
     Route: 065
  4. ATORVASTATIN [Concomitant]
     Active Substance: ATORVASTATIN
  5. KAPANOL [Concomitant]
  6. VALIUM [Suspect]
     Active Substance: DIAZEPAM
     Indication: PRODUCT USED FOR UNKNOWN INDICATION
     Dosage: 1 TABLET DAILY
     Route: 065
     Dates: start: 20100710

REACTIONS (8)
  - Suicidal ideation [Not Recovered/Not Resolved]
  - Ankle fracture [Unknown]
  - Wrist fracture [Unknown]
  - Anger [Not Recovered/Not Resolved]
  - Rib fracture [Unknown]
  - Insomnia [Not Recovered/Not Resolved]
  - Myocardial infarction [Unknown]
  - Back pain [Unknown]

NARRATIVE: CASE EVENT DATE: 20170830
